FAERS Safety Report 6970976-7 (Version None)
Quarter: 2010Q3

REPORT INFORMATION
  Report Type: 
  Country: None (occurrence: None)
  Receive Date: 20100908
  Receipt Date: 20100827
  Transmission Date: 20110219
  Serious: Yes (Hospitalization, Other)
  Sender: FDA-Public Use
  Company Number: US-PFIZER INC-2010047005

PATIENT
  Sex: Male

DRUGS (8)
  1. CHANTIX [Suspect]
     Indication: SMOKING CESSATION THERAPY
     Dosage: UNK
     Route: 048
     Dates: start: 20080521, end: 20080601
  2. REYATAZ [Concomitant]
     Indication: HIV TEST POSITIVE
     Dosage: UNK
     Dates: start: 20040901
  3. NORVIR [Concomitant]
     Indication: HIV TEST POSITIVE
     Dosage: UNK
     Dates: start: 20040901
  4. VIREAD [Concomitant]
     Indication: HIV TEST POSITIVE
     Dosage: UNK
     Dates: start: 20041001
  5. GABAPENTIN [Concomitant]
     Indication: HIV TEST POSITIVE
     Dosage: UNK
     Dates: start: 20080101
  6. ZIAGEN [Concomitant]
     Indication: HIV TEST POSITIVE
     Dosage: UNK
     Dates: start: 20080501
  7. ANDROGEL [Concomitant]
     Indication: BLOOD TESTOSTERONE DECREASED
     Dosage: UNK
     Dates: start: 20050701, end: 20090201
  8. VIAGRA [Concomitant]
     Indication: BLOOD TESTOSTERONE DECREASED
     Dosage: UNK
     Dates: start: 20050701, end: 20090201

REACTIONS (5)
  - DIZZINESS [None]
  - FALL [None]
  - LOSS OF CONSCIOUSNESS [None]
  - PAIN [None]
  - UPPER LIMB FRACTURE [None]
